FAERS Safety Report 11831900 (Version 2)
Quarter: 2015Q4

REPORT INFORMATION
  Report Type: Spontaneous
  Country: FR (occurrence: FR)
  Receive Date: 20151214
  Receipt Date: 20151215
  Transmission Date: 20160305
  Serious: Yes (Other)
  Sender: FDA-Public Use
  Company Number: FR-ASTRAZENECA-2015SF23063

PATIENT
  Age: 34936 Day
  Sex: Female

DRUGS (7)
  1. LERCANIDIPINE [Concomitant]
     Active Substance: LERCANIDIPINE
     Indication: HYPERTENSION
  2. IRESSA [Suspect]
     Active Substance: GEFITINIB
     Indication: NON-SMALL CELL LUNG CANCER
     Route: 048
     Dates: start: 20130906
  3. LASILIX [Concomitant]
     Active Substance: FUROSEMIDE
     Indication: HYPERTENSION
  4. IRESSA [Suspect]
     Active Substance: GEFITINIB
     Indication: EGFR GENE MUTATION
     Route: 048
     Dates: start: 20130906
  5. CORTANCYL [Concomitant]
     Active Substance: PREDNISONE
     Indication: ILL-DEFINED DISORDER
     Dates: start: 201510
  6. LEVOTHYROX [Concomitant]
     Active Substance: LEVOTHYROXINE
     Indication: HYPOTHYROIDISM
  7. TAREG [Concomitant]
     Active Substance: VALSARTAN
     Indication: HYPERTENSION

REACTIONS (9)
  - Blood sodium abnormal [Unknown]
  - Neutrophil count increased [Unknown]
  - Malignant neoplasm progression [Not Recovered/Not Resolved]
  - Electrocardiogram ST segment depression [Unknown]
  - Electrocardiogram QT shortened [Unknown]
  - Atrial fibrillation [Unknown]
  - Blood glucose increased [Unknown]
  - Blood potassium abnormal [Unknown]
  - Creatinine renal clearance decreased [Unknown]

NARRATIVE: CASE EVENT DATE: 20151124
